FAERS Safety Report 8583511-7 (Version None)
Quarter: 2012Q3

REPORT INFORMATION
  Report Type: 
  Country: None (occurrence: None)
  Receive Date: 20120809
  Receipt Date: 20120730
  Transmission Date: 20120928
  Serious: Yes (Other)
  Sender: FDA-Public Use
  Company Number: US-RB-041312-12

PATIENT
  Age: 54 Year
  Sex: Male

DRUGS (11)
  1. ATENOLOL [Concomitant]
     Indication: HYPERTENSION
     Route: 065
  2. ASPIRIN [Concomitant]
     Indication: PROPHYLAXIS
     Route: 065
  3. HEROIN [Suspect]
     Indication: DRUG DEPENDENCE
     Dosage: DOSE DETAILS NOT PROVIDED
     Route: 065
     Dates: end: 20120601
  4. LOVASTATIN [Concomitant]
     Indication: HYPERTENSION
     Route: 065
  5. SUBOXONE [Suspect]
     Indication: DRUG DEPENDENCE
     Dosage: 1 - 1 1/2 STRIPS PER DAY/PRESCRIBED 2 FILMS PER DAY
     Route: 060
     Dates: start: 20120601
  6. PROZAC [Concomitant]
     Indication: DEPRESSION
     Route: 065
  7. FUROSEMIDE [Concomitant]
     Indication: HYPERTENSION
     Route: 065
  8. LISINOPRIL [Concomitant]
     Indication: HYPERTENSION
     Route: 065
  9. MULTI-VITAMIN [Concomitant]
     Indication: MEDICAL DIET
     Dosage: DOSE DETAILS NOT PROVIDED
     Route: 065
  10. KLONOPIN [Concomitant]
     Indication: ANXIETY
     Route: 065
     Dates: end: 20120601
  11. SUBOXONE [Suspect]
     Dosage: DOSING DETAILS UNKNOWN
     Route: 060
     Dates: start: 20110101, end: 20120101

REACTIONS (10)
  - HEPATITIS C [None]
  - HEPATIC ENZYME INCREASED [None]
  - SUBSTANCE ABUSE [None]
  - VOMITING [None]
  - DIARRHOEA [None]
  - POOR QUALITY SLEEP [None]
  - INFECTION [None]
  - UNDERDOSE [None]
  - WRONG TECHNIQUE IN DRUG USAGE PROCESS [None]
  - HEPATIC CIRRHOSIS [None]
